FAERS Safety Report 8495743-7 (Version None)
Quarter: 2012Q3

REPORT INFORMATION
  Report Type: 
  Country: None (occurrence: None)
  Receive Date: 20120709
  Receipt Date: 20120702
  Transmission Date: 20120928
  Serious: Yes (Death)
  Sender: FDA-Public Use
  Company Number: US-SANOFI-AVENTIS-2012SA045964

PATIENT
  Age: 73 Year
  Sex: Male
  Weight: 73.47 kg

DRUGS (9)
  1. SERTRALINE HYDROCHLORIDE [Concomitant]
     Dates: start: 20110714, end: 20120616
  2. LEVOTHYROXINE SODIUM [Concomitant]
     Dates: start: 20091005, end: 20120616
  3. CIPROFLOXACIN [Concomitant]
     Route: 065
     Dates: start: 20120613, end: 20120616
  4. BLINDED THERAPY [Suspect]
     Indication: NON-SMALL CELL LUNG CANCER STAGE IV
     Route: 042
     Dates: start: 20120606, end: 20120606
  5. MEDROL [Concomitant]
     Dates: start: 20120613, end: 20120616
  6. BUDESONIDE/FORMOTEROL [Concomitant]
     Dates: start: 20111031, end: 20120616
  7. PRAVASTATIN [Concomitant]
     Dates: start: 20120612, end: 20120616
  8. DOCETAXEL [Suspect]
     Indication: NON-SMALL CELL LUNG CANCER STAGE IV
     Route: 042
     Dates: start: 20120606, end: 20120606
  9. LANSOPRAZOLE [Concomitant]
     Indication: GASTROOESOPHAGEAL REFLUX DISEASE
     Dates: start: 20120306, end: 20120616

REACTIONS (1)
  - LUNG NEOPLASM MALIGNANT [None]
